FAERS Safety Report 9861100 (Version 1)
Quarter: 2014Q1

REPORT INFORMATION
  Report Type: Spontaneous
  Country: US (occurrence: US)
  Receive Date: 20140202
  Receipt Date: 20140202
  Transmission Date: 20141002
  Serious: No
  Sender: FDA-Public Use
  Company Number: US-ALLERGAN-1303501US

PATIENT
  Age: 78 Year
  Sex: Female

DRUGS (9)
  1. BOTOX [Suspect]
     Indication: MIGRAINE
     Dosage: UNK UNK, SINGLE
  2. BOTOX [Suspect]
     Dosage: UNK UNK, SINGLE
  3. PROVIGIL [Concomitant]
     Indication: CHRONIC FATIGUE SYNDROME
     Dosage: 200 MG, QD
     Route: 048
  4. TRAMADOL [Concomitant]
     Indication: PAIN
     Dosage: 30 MG, PRN
     Route: 048
  5. HYDROCODONE [Concomitant]
     Indication: PAIN
     Dosage: UNK UNK, PRN
     Route: 048
  6. DIAZEPAM [Concomitant]
     Indication: MUSCLE SPASMS
     Dosage: 10 MG, PRN
     Route: 048
  7. LATANOPROST [Concomitant]
     Indication: GLAUCOMA
     Dosage: 2 GTT, QHS
     Route: 047
  8. LIDODERM PATCHES [Concomitant]
     Indication: BACK PAIN
     Dosage: UNK
     Route: 061
  9. FROVA [Concomitant]
     Indication: MIGRAINE
     Dosage: UNK UNK, PRN
     Route: 048

REACTIONS (2)
  - Dry skin [Unknown]
  - Injection site pain [Not Recovered/Not Resolved]
